FAERS Safety Report 5108659-0 (Version None)
Quarter: 2006Q3

REPORT INFORMATION
  Report Type: 
  Country: None (occurrence: None)
  Receive Date: 20060915
  Receipt Date: 20060911
  Transmission Date: 20061208
  Serious: Yes (Other)
  Sender: FDA-Public Use
  Company Number: GXKR2006GB05630

PATIENT
  Age: 39 Year
  Sex: Female
  Weight: 70 kg

DRUGS (3)
  1. CITALOPRAM (NGX)(CITALOPRAM) [Suspect]
     Indication: DEPRESSION
     Dosage: ORAL
     Route: 048
     Dates: start: 20000613, end: 20040201
  2. GLICLAZIDE [Concomitant]
  3. SIMVASTATIN [Concomitant]

REACTIONS (1)
  - INTENTIONAL SELF-INJURY [None]
